FAERS Safety Report 4961440-5 (Version None)
Quarter: 2006Q1

REPORT INFORMATION
  Report Type: 
  Country: None (occurrence: None)
  Receive Date: 20060201
  Receipt Date: 20051204
  Transmission Date: 20060701
  Serious: No
  Sender: FDA-Public Use
  Company Number: 2005PV005409

PATIENT
  Age: 49 Year
  Sex: Female
  Weight: 102.9665 kg

DRUGS (3)
  1. BYETTA [Suspect]
     Indication: DIABETES MELLITUS NON-INSULIN-DEPENDENT
     Dosage: 10 MCG; BID; SC; SEE IMAGE
     Route: 058
     Dates: start: 20051001, end: 20051201
  2. BYETTA [Suspect]
     Indication: DIABETES MELLITUS NON-INSULIN-DEPENDENT
     Dosage: 10 MCG; BID; SC; SEE IMAGE
     Route: 058
     Dates: start: 20051206
  3. METFORMIN [Concomitant]

REACTIONS (9)
  - BLOOD GLUCOSE DECREASED [None]
  - DECREASED APPETITE [None]
  - ENERGY INCREASED [None]
  - FATIGUE [None]
  - HEADACHE [None]
  - HYPERHIDROSIS [None]
  - INCREASED APPETITE [None]
  - NAUSEA [None]
  - TREMOR [None]
